FAERS Safety Report 9471736 (Version 1)
Quarter: 2013Q3

REPORT INFORMATION
  Report Type: Spontaneous
  Country: FR (occurrence: None)
  Receive Date: 20130819
  Receipt Date: 20130819
  Transmission Date: 20140515
  Serious: Yes (Other)
  Sender: FDA-Public Use
  Company Number: SYM-2013-08387

PATIENT
  Age: 82 Year
  Sex: Male

DRUGS (3)
  1. FLAGYL [Suspect]
     Indication: PNEUMONIA
     Route: 048
     Dates: start: 20130516
  2. AUGMENTIN [Suspect]
     Indication: PNEUMONIA
     Dosage: 1 GM, 3 IN 1 D, ORAL
     Route: 048
     Dates: start: 20130516
  3. PREVISCAN (FLUINDIONE) (FLUINDIONE) [Suspect]
     Indication: PRODUCT USED FOR UNKNOWN INDICATION
     Route: 048
     Dates: end: 20130517

REACTIONS (3)
  - International normalised ratio increased [None]
  - Haemoptysis [None]
  - General physical health deterioration [None]
